FAERS Safety Report 12447202 (Version 1)
Quarter: 2016Q2

REPORT INFORMATION
  Report Type: Spontaneous
  Country: US (occurrence: US)
  Receive Date: 20160608
  Receipt Date: 20160608
  Transmission Date: 20160815
  Serious: No
  Sender: FDA-Public Use
  Company Number: US-ACTAVIS-2016-10909

PATIENT
  Age: 85 Year
  Sex: Male

DRUGS (1)
  1. RAMIPRIL (AELLC) [Suspect]
     Active Substance: RAMIPRIL
     Indication: BLOOD PRESSURE ABNORMAL
     Dosage: 10 MG, DAILY
     Route: 048

REACTIONS (2)
  - Heart rate increased [Recovered/Resolved]
  - Headache [Recovered/Resolved]
